FAERS Safety Report 20775891 (Version 7)
Quarter: 2025Q4

REPORT INFORMATION
  Report Type: Spontaneous
  Country: EU (occurrence: EU)
  Receive Date: 20220502
  Receipt Date: 20251221
  Transmission Date: 20260117
  Serious: Yes (Life-Threatening, Other)
  Sender: NOVARTIS
  Company Number: EU-NOVARTISPH-NVSC2022PL099992

PATIENT
  Age: 10 Year
  Sex: Male

DRUGS (8)
  1. CYCLOSPORINE [Suspect]
     Active Substance: CYCLOSPORINE
     Indication: Prophylaxis against graft versus host disease
     Dosage: UNK, PRETRANSPLANTATION DAY -1 TO DAY +62
     Route: 065
  2. METHOTREXATE [Suspect]
     Active Substance: METHOTREXATE
     Indication: Prophylaxis against graft versus host disease
     Dosage: UNK, ON POST-TRANSPLANTATION DAYS PLUS 1, PLUS 3 AND PLUS 6
     Route: 065
  3. METHOTREXATE [Suspect]
     Active Substance: METHOTREXATE
     Dosage: ON DAYS +1, +3 AND +6
     Route: 065
  4. MYCOPHENOLATE MOFETIL [Suspect]
     Active Substance: MYCOPHENOLATE MOFETIL
     Indication: Graft versus host disease
     Dosage: UNK
     Route: 065
  5. MYCOPHENOLATE MOFETIL [Suspect]
     Active Substance: MYCOPHENOLATE MOFETIL
     Indication: Graft versus host disease in gastrointestinal tract
  6. MYCOPHENOLATE MOFETIL [Suspect]
     Active Substance: MYCOPHENOLATE MOFETIL
     Indication: Graft versus host disease in skin
  7. MYCOPHENOLATE MOFETIL [Suspect]
     Active Substance: MYCOPHENOLATE MOFETIL
     Indication: Graft versus host disease in skin
  8. MYCOPHENOLATE MOFETIL [Suspect]
     Active Substance: MYCOPHENOLATE MOFETIL
     Indication: Graft versus host disease in gastrointestinal tract

REACTIONS (12)
  - Acute graft versus host disease in skin [Unknown]
  - Skin lesion [Unknown]
  - Blister [Unknown]
  - Graft versus host disease in gastrointestinal tract [Unknown]
  - Diarrhoea [Unknown]
  - Abdominal pain [Unknown]
  - Angiopathy [Unknown]
  - Mucosal inflammation [Unknown]
  - Pyrexia [Unknown]
  - Viral haemorrhagic cystitis [Unknown]
  - BK virus infection [Unknown]
  - Off label use [Unknown]
